FAERS Safety Report 7608516-1 (Version None)
Quarter: 2011Q3

REPORT INFORMATION
  Report Type: 
  Country: None (occurrence: None)
  Receive Date: 20110713
  Receipt Date: 20110713
  Transmission Date: 20111222
  Serious: Yes (Hospitalization)
  Sender: FDA-Public Use
  Company Number: None

PATIENT
  Sex: Male
  Weight: 76.4 kg

DRUGS (3)
  1. RADIATION THERAPY [Concomitant]
  2. PACLITAXEL [Suspect]
     Indication: LUNG NEOPLASM MALIGNANT
     Dosage: 81 MG WEEKLY X 7 IV
     Route: 042
     Dates: start: 20100622, end: 20100727
  3. CARBOPLATIN [Suspect]
     Indication: LUNG NEOPLASM MALIGNANT
     Dosage: 221 MG WEEKLY X 7 IV
     Route: 042
     Dates: start: 20100622, end: 20100727

REACTIONS (6)
  - APPLICATION SITE PAIN [None]
  - DELIRIUM [None]
  - HYPOXIA [None]
  - PSYCHOTIC DISORDER [None]
  - RADIATION OESOPHAGITIS [None]
  - DYSPNOEA [None]
